FAERS Safety Report 24202180 (Version 2)
Quarter: 2024Q3

REPORT INFORMATION
  Report Type: Report from Study
  Country: US (occurrence: US)
  Receive Date: 20240812
  Receipt Date: 20240819
  Transmission Date: 20241016
  Serious: Yes (Hospitalization, Other)
  Sender: ABBVIE
  Company Number: US-ABBVIE-5875988

PATIENT
  Sex: Female

DRUGS (2)
  1. RINVOQ [Suspect]
     Active Substance: UPADACITINIB
     Indication: Dermatitis atopic
     Dosage: LAST ADMIN DATE: 2024
     Route: 048
     Dates: start: 20240417
  2. RINVOQ [Suspect]
     Active Substance: UPADACITINIB
     Indication: Dermatitis atopic
     Dosage: STRENGTH: 15 MG
     Route: 048
     Dates: start: 202406

REACTIONS (4)
  - Road traffic accident [Unknown]
  - Ankle operation [Unknown]
  - Knee operation [Unknown]
  - Limb operation [Unknown]

NARRATIVE: CASE EVENT DATE: 20240101
